FAERS Safety Report 4942940-0 (Version None)
Quarter: 2006Q1

REPORT INFORMATION
  Report Type: 
  Country: None (occurrence: None)
  Receive Date: 20060309
  Receipt Date: 20060224
  Transmission Date: 20060701
  Serious: Yes (Other)
  Sender: FDA-Public Use
  Company Number: 222528

PATIENT
  Age: 74 Year
  Sex: Female
  Weight: 52 kg

DRUGS (10)
  1. RITUXAN [Suspect]
     Indication: NON-HODGKIN'S LYMPHOMA
     Dosage: 540 MG, INTRAVENOUS
     Route: 042
     Dates: start: 20041025
  2. CYCLOPHOSPHAMIDE [Suspect]
     Indication: NON-HODGKIN'S LYMPHOMA
     Dosage: 1080 MG, INTRAVENOUS
     Route: 042
     Dates: start: 20041025
  3. DOXORUBICIN HCL [Suspect]
     Indication: NON-HODGKIN'S LYMPHOMA
     Dosage: 72 MG, INTRAVENOUS
     Route: 042
     Dates: start: 20041025
  4. VINCRISTINE [Suspect]
     Indication: NON-HODGKIN'S LYMPHOMA
     Dosage: 2 MG, INTRAVENOUS
     Route: 042
     Dates: start: 20041025
  5. PREDNISOLONE [Suspect]
     Indication: NON-HODGKIN'S LYMPHOMA
     Dosage: 85 MG, INTRAVENOUS
     Route: 042
     Dates: start: 20041025
  6. IBUPROFEN [Concomitant]
  7. POLARAMINE [Concomitant]
  8. FAMOTIDINE [Concomitant]
  9. LANSOPRAZOLE [Concomitant]
  10. DIFLUCAN [Concomitant]

REACTIONS (3)
  - BLOOD GLUCOSE DECREASED [None]
  - NEUTROPHIL COUNT DECREASED [None]
  - WHITE BLOOD CELL COUNT DECREASED [None]
